FAERS Safety Report 14583994 (Version 9)
Quarter: 2023Q2

REPORT INFORMATION
  Report Type: Spontaneous
  Country: CA (occurrence: CA)
  Receive Date: 20180228
  Receipt Date: 20230427
  Transmission Date: 20230722
  Serious: Yes (Other)
  Sender: FDA-Public Use
  Company Number: CA-PFIZER INC-2017174543

PATIENT
  Age: 76 Year
  Sex: Male
  Weight: 70 kg

DRUGS (21)
  1. SOMAVERT [Suspect]
     Active Substance: PEGVISOMANT
     Indication: Acromegaly
     Dosage: 20 MG, 1X/DAY
     Route: 058
     Dates: start: 201504, end: 2018
  2. SOMAVERT [Suspect]
     Active Substance: PEGVISOMANT
     Dosage: 20 MG, 1X/DAY
     Route: 058
     Dates: start: 20150401
  3. SOMAVERT [Suspect]
     Active Substance: PEGVISOMANT
     Dosage: 15 MG, 1X/DAY
     Route: 058
     Dates: start: 2018
  4. SOMAVERT [Suspect]
     Active Substance: PEGVISOMANT
     Dosage: 15 MG, 1X/DAY
     Route: 058
  5. SOMAVERT [Suspect]
     Active Substance: PEGVISOMANT
     Dosage: 15 MG, 1X/DAY
     Route: 058
     Dates: start: 2022
  6. SOMAVERT [Suspect]
     Active Substance: PEGVISOMANT
     Dosage: 10 MG, 1X/DAY
     Route: 058
     Dates: start: 2022
  7. ANDROGEL [Concomitant]
     Active Substance: TESTOSTERONE
     Dosage: 5 G (1%), 1X/DAY(OD)
     Route: 065
  8. ATENOLOL [Concomitant]
     Active Substance: ATENOLOL
     Dosage: 12.5 MG, UNK
     Route: 048
  9. AMLODIPINE [Concomitant]
     Active Substance: AMLODIPINE BESYLATE
     Dosage: 10 MG, 1X/DAY(OD)
     Route: 048
  10. AMLODIPINE [Concomitant]
     Active Substance: AMLODIPINE BESYLATE
     Dosage: 5 MG, 1X/DAY
     Route: 048
  11. PERINDOPRIL ERBUMINE [Concomitant]
     Active Substance: PERINDOPRIL ERBUMINE
     Dosage: 8 MG, 1X/DAY(OD)
     Route: 048
  12. GLICLAZIDE MR STADA [Concomitant]
     Dosage: 90 MG, UNK
     Route: 048
  13. LIPITOR [Concomitant]
     Active Substance: ATORVASTATIN CALCIUM
     Dosage: 40 MG, 1X/DAY(OD)
     Route: 048
  14. LIPITOR [Concomitant]
     Active Substance: ATORVASTATIN CALCIUM
     Dosage: 20 MG, DAILY
  15. JANUMET [Concomitant]
     Active Substance: METFORMIN HYDROCHLORIDE\SITAGLIPTIN PHOSPHATE
     Dosage: 1 DF (50/500 MG), 2X/DAY
     Route: 048
  16. JANUMET [Concomitant]
     Active Substance: METFORMIN HYDROCHLORIDE\SITAGLIPTIN PHOSPHATE
     Dosage: 1 DF (500/1000), 2X/DAY
     Route: 048
  17. NORVASC [Concomitant]
     Active Substance: AMLODIPINE BESYLATE
     Dosage: 15 MG, DAILY
  18. PERINDOPRIL [Concomitant]
     Active Substance: PERINDOPRIL
     Dosage: 8 MG, DAILY
  19. PEGVISOMANT [Concomitant]
     Active Substance: PEGVISOMANT
     Dosage: 15 MG, DAILY
  20. SYNTHROID [Concomitant]
     Active Substance: LEVOTHYROXINE SODIUM
     Dosage: 0.025 MG, EVERY OTHER DAY
     Route: 065
  21. SYNTHROID [Concomitant]
     Active Substance: LEVOTHYROXINE SODIUM
     Dosage: 25 MG, DAILY

REACTIONS (25)
  - Neoplasm progression [Unknown]
  - Hypothyroidism [Unknown]
  - Oedema peripheral [Unknown]
  - Blood testosterone decreased [Unknown]
  - Blood gonadotrophin decreased [Unknown]
  - Hyperkeratosis [Unknown]
  - Hyperhidrosis [Unknown]
  - Snoring [Unknown]
  - Injection site pain [Unknown]
  - Weight decreased [Unknown]
  - Product complaint [Unknown]
  - Thyroxine decreased [Unknown]
  - Tri-iodothyronine decreased [Unknown]
  - Dyslipidaemia [Recovering/Resolving]
  - Hypertension [Recovering/Resolving]
  - Muscular weakness [Unknown]
  - Constipation [Unknown]
  - Temperature intolerance [Unknown]
  - Blood pressure fluctuation [Unknown]
  - Thyroid hormones decreased [Unknown]
  - Haemoglobin increased [Unknown]
  - Secondary hypogonadism [Unknown]
  - Nausea [Recovering/Resolving]
  - Muscle spasms [Unknown]
  - Incorrect dose administered [Unknown]

NARRATIVE: CASE EVENT DATE: 20170501
